FAERS Safety Report 25651089 (Version 3)
Quarter: 2025Q4

REPORT INFORMATION
  Report Type: Spontaneous
  Country: US (occurrence: US)
  Receive Date: 20250806
  Receipt Date: 20251115
  Transmission Date: 20260118
  Serious: No
  Sender: NOVARTIS
  Company Number: US-002147023-NVSC2025US122408

PATIENT
  Sex: Female

DRUGS (1)
  1. COSENTYX [Suspect]
     Active Substance: SECUKINUMAB
     Indication: Product used for unknown indication
     Dosage: UNK, QMO (150MG X 2)
     Route: 065

REACTIONS (4)
  - Device malfunction [Unknown]
  - Incorrect dose administered by device [Unknown]
  - Needle issue [Unknown]
  - Product quality issue [Unknown]
